FAERS Safety Report 8133687-0 (Version None)
Quarter: 2012Q1

REPORT INFORMATION
  Report Type: 
  Country: None (occurrence: None)
  Receive Date: 20120213
  Receipt Date: 20120208
  Transmission Date: 20120608
  Serious: Yes (Other)
  Sender: FDA-Public Use
  Company Number: PHHY2012FR011511

PATIENT
  Sex: Female

DRUGS (1)
  1. GILENYA [Suspect]
     Dosage: UNK

REACTIONS (3)
  - CHEST DISCOMFORT [None]
  - CONJUNCTIVAL HAEMORRHAGE [None]
  - HYPERTENSION [None]
